FAERS Safety Report 8638970 (Version 2)
Quarter: 2012Q4

REPORT INFORMATION
  Report Type: Report from Study
  Country: FR (occurrence: FR)
  Receive Date: 20120627
  Receipt Date: 20121119
  Transmission Date: 20130627
  Serious: Yes (Life-Threatening, Hospitalization)
  Sender: FDA-Public Use
  Company Number: FR-CELGENEUS-056-21880-12062609

PATIENT
  Age: 60 Year
  Sex: Male

DRUGS (14)
  1. REVLIMID [Suspect]
     Indication: MULTIPLE MYELOMA
     Route: 048
     Dates: start: 20120426
  2. BORTEZOMIB [Suspect]
     Indication: MULTIPLE MYELOMA
     Route: 065
     Dates: start: 20120426
  3. DEXAMETHASONE [Suspect]
     Indication: MULTIPLE MYELOMA
     Route: 065
     Dates: start: 20120426
  4. INNOHEP [Concomitant]
     Indication: THROMBOSIS PROPHYLAXIS
     Route: 058
     Dates: start: 20120427
  5. INNOHEP [Concomitant]
     Dosage: 3500 IU (International Unit)
     Route: 065
  6. BACTRIM [Concomitant]
     Indication: ANTIBACTERIAL PROPHYLAXIS
     Route: 048
     Dates: start: 20120426
  7. ZELITREX [Concomitant]
     Indication: ANTIVIRAL PROPHYLAXIS
     Route: 048
     Dates: start: 20120426
  8. ORACILLINE [Concomitant]
     Indication: ANTIBACTERIAL PROPHYLAXIS
     Route: 048
     Dates: start: 20120426
  9. OXYNORM [Concomitant]
     Indication: BONE PAIN
     Dosage: 20 Milligram
     Route: 048
     Dates: start: 20120423
  10. OXYCONTIN [Concomitant]
     Indication: BONE PAIN
     Route: 048
     Dates: start: 20120423
  11. OXYCONTIN [Concomitant]
     Dosage: 100 Milligram
     Route: 065
  12. OXYCONTIN [Concomitant]
     Dosage: 80 Milligram
     Route: 065
  13. INSULIN RAPID [Concomitant]
     Indication: DRUG USE FOR UNKNOWN INDICATION
     Route: 041
  14. PARACETAMOL [Concomitant]
     Indication: DRUG USE FOR UNKNOWN INDICATION
     Dosage: 3 Gram
     Route: 065

REACTIONS (1)
  - Acute pulmonary oedema [Recovered/Resolved with Sequelae]
